FAERS Safety Report 17914712 (Version 2)
Quarter: 2020Q3

REPORT INFORMATION
  Report Type: Spontaneous
  Country: BR (occurrence: BR)
  Receive Date: 20200619
  Receipt Date: 20200722
  Transmission Date: 20201103
  Serious: No
  Sender: FDA-Public Use
  Company Number: BR-UCBSA-2020024300

PATIENT
  Sex: Male

DRUGS (1)
  1. KEPPRA [Suspect]
     Active Substance: LEVETIRACETAM
     Indication: EPILEPSY
     Dosage: 21 MILLIGRAM, 2X/DAY (BID)
     Route: 048
     Dates: start: 202002, end: 202006

REACTIONS (3)
  - Off label use [Unknown]
  - Underdose [Unknown]
  - Dysphemia [Recovered/Resolved]

NARRATIVE: CASE EVENT DATE: 2020
